FAERS Safety Report 7969120-9 (Version None)
Quarter: 2011Q4

REPORT INFORMATION
  Report Type: 
  Country: None (occurrence: None)
  Receive Date: 20111209
  Receipt Date: 20111130
  Transmission Date: 20120403
  Serious: Yes (Hospitalization, Other)
  Sender: FDA-Public Use
  Company Number: JP-ROCHE-1013223

PATIENT
  Sex: Female
  Weight: 60 kg

DRUGS (14)
  1. DECADRON [Suspect]
     Indication: RHEUMATOID ARTHRITIS
     Dosage: DOSAGE IS UNCERTAIN.
     Route: 014
     Dates: start: 20110909, end: 20110909
  2. POLAPREZINC [Concomitant]
     Route: 048
  3. PREDNISOLONE [Concomitant]
     Indication: RHEUMATOID ARTHRITIS
     Route: 048
  4. ALENDRONATE SODIUM [Concomitant]
     Indication: INSOMNIA
     Route: 048
  5. ZOLPIDEM [Concomitant]
     Indication: INSOMNIA
     Route: 048
  6. REBAMIPIDE [Concomitant]
     Indication: GASTRITIS PROPHYLAXIS
     Route: 048
  7. VOLTAREN [Concomitant]
     Indication: PAIN
     Route: 048
  8. ACTEMRA [Suspect]
     Indication: RHEUMATOID ARTHRITIS
     Route: 041
     Dates: end: 20110930
  9. METHOTREXATE [Suspect]
     Indication: RHEUMATOID ARTHRITIS
     Dosage: DOSAGE IS UNCERTAIN.
     Route: 048
  10. MAGNESIUM SULFATE [Concomitant]
     Indication: CONSTIPATION
     Route: 048
  11. OMEPRAZOLE [Concomitant]
     Indication: GASTRITIS
     Route: 048
  12. CALFINA [Concomitant]
     Indication: OSTEOPOROSIS
     Route: 048
  13. XYLOCAINE [Suspect]
     Indication: RHEUMATOID ARTHRITIS
     Route: 014
     Dates: start: 20110909, end: 20110909
  14. FOLIC ACID [Concomitant]
     Route: 048

REACTIONS (8)
  - PANCYTOPENIA [None]
  - RENAL CELL CARCINOMA [None]
  - PNEUMONIA [None]
  - HEPATIC FUNCTION ABNORMAL [None]
  - DISSEMINATED INTRAVASCULAR COAGULATION [None]
  - LOWER LIMB FRACTURE [None]
  - CYTOMEGALOVIRUS INFECTION [None]
  - SUBCUTANEOUS ABSCESS [None]
